FAERS Safety Report 5507247-1 (Version None)
Quarter: 2007Q4

REPORT INFORMATION
  Report Type: 
  Country: None (occurrence: None)
  Receive Date: 20071105
  Receipt Date: 20071105
  Transmission Date: 20080405
  Serious: No
  Sender: FDA-Public Use
  Company Number: None

PATIENT
  Age: 41 Year
  Sex: Female
  Weight: 70 kg

DRUGS (8)
  1. LYRICA [Suspect]
     Indication: PAIN
     Dosage: 150MG PO DAILY
     Route: 048
  2. ZETIA [Concomitant]
  3. PRILOSEC [Concomitant]
  4. LIPITOR [Concomitant]
  5. OXYCONTIN [Concomitant]
  6. ALTACE [Concomitant]
  7. FOLIC ACID [Concomitant]
  8. M.V.I. [Concomitant]

REACTIONS (5)
  - DYSARTHRIA [None]
  - DYSKINESIA [None]
  - LETHARGY [None]
  - RENAL FAILURE ACUTE [None]
  - RHABDOMYOLYSIS [None]
